FAERS Safety Report 6278746-2 (Version None)
Quarter: 2009Q3

REPORT INFORMATION
  Report Type: 
  Country: None (occurrence: None)
  Receive Date: 20090721
  Receipt Date: 20090709
  Transmission Date: 20100115
  Serious: Yes (Other)
  Sender: FDA-Public Use
  Company Number: 237690K09USA

PATIENT
  Age: 41 Year
  Sex: Female

DRUGS (7)
  1. REBIF [Suspect]
     Indication: MULTIPLE SCLEROSIS
     Dosage: 44 MCG, 3 IN 1 WEEKS, SUBCUTANEOUS
     Route: 058
     Dates: start: 20020501
  2. ANTIDEPRESSANTS (ANTIDEPRESSANTS) [Concomitant]
  3. ALLERGY MEDICATION (ALLERGY MEDICATION) [Concomitant]
  4. ASTHMA MEDICATIONS (ANTI-ASTHMATICS) [Concomitant]
  5. KLONOPIN [Concomitant]
  6. PAROXETINE HCL [Concomitant]
  7. PREMARIN [Concomitant]

REACTIONS (2)
  - DIABETES MELLITUS [None]
  - MEMORY IMPAIRMENT [None]
